FAERS Safety Report 7812991-7 (Version None)
Quarter: 2011Q4

REPORT INFORMATION
  Report Type: 
  Country: None (occurrence: None)
  Receive Date: 20111013
  Receipt Date: 20111004
  Transmission Date: 20120403
  Serious: No
  Sender: FDA-Public Use
  Company Number: US-ELI_LILLY_AND_COMPANY-US201110001712

PATIENT
  Sex: Male

DRUGS (4)
  1. ANALGESICS [Concomitant]
  2. CIALIS [Suspect]
     Indication: ERECTILE DYSFUNCTION
     Dosage: 10 MG, PRN
  3. CIALIS [Suspect]
     Dosage: 15 MG, PRN
  4. CIALIS [Suspect]
     Dosage: 5 MG, PRN

REACTIONS (7)
  - VISUAL IMPAIRMENT [None]
  - PAIN IN EXTREMITY [None]
  - BACK PAIN [None]
  - INSOMNIA [None]
  - HYPOTENSION [None]
  - HEADACHE [None]
  - MYALGIA [None]
